FAERS Safety Report 4843772-4 (Version None)
Quarter: 2005Q4

REPORT INFORMATION
  Report Type: 
  Country: None (occurrence: None)
  Receive Date: 20051129
  Receipt Date: 20051117
  Transmission Date: 20060501
  Serious: Yes (Hospitalization)
  Sender: FDA-Public Use
  Company Number: GXKR2005GB01989

PATIENT
  Age: 39 Year
  Sex: Female

DRUGS (3)
  1. PHENOYXMETHYLPENICILLIN [Suspect]
     Indication: PHARYNGOLARYNGEAL PAIN
     Dosage: 250 MG, ORAL
     Route: 048
     Dates: start: 20051020, end: 20051022
  2. PROCYCLIDINE HYDROCHLORIDE 2MG TAB [Concomitant]
  3. CHLORPHENIRAMINE TAB [Concomitant]

REACTIONS (2)
  - RASH [None]
  - SWELLING FACE [None]
